FAERS Safety Report 23758719 (Version 1)
Quarter: 2024Q2

REPORT INFORMATION
  Report Type: Spontaneous
  Country: US (occurrence: None)
  Receive Date: 20240418
  Receipt Date: 20240418
  Transmission Date: 20240716
  Serious: No
  Sender: FDA-Public Use
  Company Number: US-ROCHE-3403450

PATIENT
  Sex: Female
  Weight: 59.928 kg

DRUGS (1)
  1. AVASTIN [Suspect]
     Active Substance: BEVACIZUMAB
     Indication: Neovascular age-related macular degeneration
     Dosage: 3 MONTHS THEN REEVALUATED
     Route: 050
     Dates: start: 20230803

REACTIONS (10)
  - Asthenia [Recovered/Resolved]
  - Ocular hyperaemia [Recovering/Resolving]
  - Pain [Recovered/Resolved]
  - Nausea [Recovered/Resolved]
  - Fatigue [Not Recovered/Not Resolved]
  - Headache [Recovered/Resolved]
  - Dry eye [Unknown]
  - Dry mouth [Unknown]
  - Off label use [Unknown]
  - Flushing [Unknown]

NARRATIVE: CASE EVENT DATE: 20230803
